FAERS Safety Report 23798749 (Version 1)
Quarter: 2024Q2

REPORT INFORMATION
  Report Type: Spontaneous
  Country: US (occurrence: US)
  Receive Date: 20240430
  Receipt Date: 20240430
  Transmission Date: 20240716
  Serious: Yes (Death, Hospitalization, Other)
  Sender: FDA-Public Use
  Company Number: US-GLANDPHARMA-US-2024GLNLIT00077

PATIENT
  Age: 52 Year
  Sex: Male

DRUGS (6)
  1. LEVETIRACETAM [Suspect]
     Active Substance: LEVETIRACETAM
     Indication: Seizure
     Route: 065
  2. AMOXICILLIN\CLAVULANATE POTASSIUM [Suspect]
     Active Substance: AMOXICILLIN\CLAVULANATE POTASSIUM
     Indication: Pneumonia
     Route: 065
  3. VANCOMYCIN [Concomitant]
     Active Substance: VANCOMYCIN
     Indication: Pneumonia
     Route: 065
  4. CEFTRIAXONE [Concomitant]
     Active Substance: CEFTRIAXONE\CEFTRIAXONE SODIUM
     Indication: Pneumonia
     Route: 065
  5. AZTREONAM [Concomitant]
     Active Substance: AZTREONAM
     Indication: Pneumonia
     Route: 065
  6. APIXABAN [Concomitant]
     Active Substance: APIXABAN
     Indication: Atrial fibrillation
     Route: 065

REACTIONS (3)
  - Acute respiratory failure [Fatal]
  - Septic shock [Fatal]
  - Toxic epidermal necrolysis [Fatal]
